FAERS Safety Report 5525447-1 (Version None)
Quarter: 2007Q4

REPORT INFORMATION
  Report Type: 
  Country: None (occurrence: None)
  Receive Date: 20071126
  Receipt Date: 20071115
  Transmission Date: 20080405
  Serious: Yes (Other)
  Sender: FDA-Public Use
  Company Number: US-PURDUE-USA_2007_0030285

PATIENT
  Sex: Male

DRUGS (1)
  1. OXYCONTIN [Suspect]
     Indication: DRUG USE FOR UNKNOWN INDICATION
     Dosage: UNK, UNK

REACTIONS (5)
  - ATRIAL FIBRILLATION [None]
  - DRUG PRESCRIBING ERROR [None]
  - FOREIGN BODY TRAUMA [None]
  - GASTROINTESTINAL ULCER [None]
  - WRONG TECHNIQUE IN DRUG USAGE PROCESS [None]
